FAERS Safety Report 23283289 (Version 1)
Quarter: 2023Q4

REPORT INFORMATION
  Report Type: Spontaneous
  Country: CO (occurrence: CO)
  Receive Date: 20231211
  Receipt Date: 20231211
  Transmission Date: 20240110
  Serious: Yes (Death, Other)
  Sender: FDA-Public Use
  Company Number: CO-HORIZON THERAPEUTICS-HZN-2023-010548

PATIENT

DRUGS (3)
  1. RAVICTI [Suspect]
     Active Substance: GLYCEROL PHENYLBUTYRATE
     Indication: Ornithine transcarbamoylase deficiency
     Dosage: 15.4 ML, DAILY,  DISTRIBUTED IN THREE DOSES OF 5, 5 AND 5.4 ML
  2. ANASTROZOLE [Concomitant]
     Active Substance: ANASTROZOLE
     Dosage: 1 MG, QD
  3. GOSERELIN [Concomitant]
     Active Substance: GOSERELIN
     Dosage: ONCE EVERY 28 DAYS

REACTIONS (1)
  - Breast cancer metastatic [Fatal]
